FAERS Safety Report 25627454 (Version 1)
Quarter: 2025Q3

REPORT INFORMATION
  Report Type: Spontaneous
  Country: US (occurrence: None)
  Receive Date: 20250730
  Receipt Date: 20250730
  Transmission Date: 20251021
  Serious: Yes (Other)
  Sender: FDA-CTU
  Company Number: None

PATIENT
  Age: 77 Year
  Sex: Female
  Weight: 53.1 kg

DRUGS (4)
  1. EVENITY [Suspect]
     Active Substance: ROMOSOZUMAB-AQQG
     Indication: Osteoporosis
     Dosage: 2 INJECTION(S) EVERY 30 DAYS SUBCUTANEOUS
     Route: 058
     Dates: start: 20250723, end: 20250723
  2. LIPITOR [Concomitant]
     Active Substance: ATORVASTATIN CALCIUM
  3. VITAMINS [Concomitant]
     Active Substance: VITAMINS
  4. Colase [Concomitant]

REACTIONS (6)
  - Rash [None]
  - Post procedural complication [None]
  - Blister [None]
  - Rash [None]
  - Adverse drug reaction [None]
  - Drug hypersensitivity [None]

NARRATIVE: CASE EVENT DATE: 20250723
